FAERS Safety Report 10128619 (Version 1)
Quarter: 2014Q2

REPORT INFORMATION
  Report Type: Spontaneous
  Country: US (occurrence: US)
  Receive Date: 20140428
  Receipt Date: 20140428
  Transmission Date: 20141212
  Serious: Yes (Other)
  Sender: FDA-Public Use
  Company Number: US-AMGEN INC.-USASP2014029499

PATIENT
  Age: 86 Year
  Sex: Female

DRUGS (2)
  1. PROLIA [Suspect]
     Indication: OSTEOPOROSIS POSTMENOPAUSAL
     Dosage: UNK
     Route: 065
     Dates: start: 201305
  2. PLAVIX [Concomitant]

REACTIONS (2)
  - Wheelchair user [Unknown]
  - Cerebrovascular accident [Unknown]
